FAERS Safety Report 25527879 (Version 1)
Quarter: 2025Q3

REPORT INFORMATION
  Report Type: Spontaneous
  Country: EU (occurrence: EU)
  Receive Date: 20250708
  Receipt Date: 20250708
  Transmission Date: 20251020
  Serious: Yes (Other)
  Sender: NOVARTIS
  Company Number: None

PATIENT
  Age: 86 Year
  Sex: Female

DRUGS (5)
  1. VOTRIENT [Suspect]
     Active Substance: PAZOPANIB HYDROCHLORIDE
     Indication: Renal cancer
     Dosage: 400 MG, QD
     Route: 048
     Dates: start: 20250422
  2. FOLIC ACID [Concomitant]
     Active Substance: FOLIC ACID
     Indication: Product used for unknown indication
     Dosage: 5 MG, QD
     Route: 048
     Dates: start: 20241217
  3. Bisoprolol kern [Concomitant]
     Indication: Product used for unknown indication
     Dosage: 2.5 MG, QD (COMPRIMIDOS EFG, 28 COMPRIMIDOS (BLISTER PVC/PVDC/AL))
     Route: 048
     Dates: start: 20130710
  4. AMLODIPINE BESYLATE [Concomitant]
     Active Substance: AMLODIPINE BESYLATE
     Indication: Product used for unknown indication
     Dosage: 100 MG, QD (AMLODIPINO KERN PHARMA 10 MG COMPRIMIDOS EFG, 30 COMPRIMIDOS)
     Route: 048
     Dates: start: 20241119
  5. ENALAPRIL MALEATE [Concomitant]
     Active Substance: ENALAPRIL MALEATE
     Indication: Product used for unknown indication
     Dosage: 100 MG, QD
     Route: 048
     Dates: start: 20241119

REACTIONS (1)
  - Hepatitis [Recovering/Resolving]

NARRATIVE: CASE EVENT DATE: 20250526
